FAERS Safety Report 9972946 (Version 1)
Quarter: 2014Q1

REPORT INFORMATION
  Report Type: Spontaneous
  Country: US (occurrence: US)
  Receive Date: 20140306
  Receipt Date: 20140306
  Transmission Date: 20141002
  Serious: Yes (Hospitalization)
  Sender: FDA-Public Use
  Company Number: US-PFIZER INC-2014060162

PATIENT
  Sex: Male

DRUGS (2)
  1. CELEBREX [Suspect]
     Dosage: UNK
  2. CELEBREX [Suspect]
     Dosage: UNK

REACTIONS (3)
  - Renal failure [Unknown]
  - Drug ineffective for unapproved indication [Unknown]
  - Abdominal discomfort [Unknown]
